FAERS Safety Report 6236632-8 (Version None)
Quarter: 2009Q2

REPORT INFORMATION
  Report Type: 
  Country: None (occurrence: None)
  Receive Date: 20090619
  Receipt Date: 20080902
  Transmission Date: 20091009
  Serious: No
  Sender: FDA-Public Use
  Company Number: US-ASTRAZENECA-2008UW18075

PATIENT
  Age: 53 Year
  Sex: Female
  Weight: 79.4 kg

DRUGS (3)
  1. ATACAND [Suspect]
     Dosage: 16 MG
     Route: 048
  2. WELLBUTRIN [Concomitant]
  3. SYNTHROID [Concomitant]

REACTIONS (3)
  - EYE DISORDER [None]
  - HEADACHE [None]
  - HYPERTENSION [None]
